FAERS Safety Report 12366938 (Version 1)
Quarter: 2016Q2

REPORT INFORMATION
  Report Type: Spontaneous
  Country: FR (occurrence: FR)
  Receive Date: 20160513
  Receipt Date: 20160513
  Transmission Date: 20160815
  Serious: Yes (Hospitalization)
  Sender: FDA-Public Use
  Company Number: FR-PFIZER INC-2016252692

PATIENT
  Age: 21 Year
  Sex: Female

DRUGS (2)
  1. LUTERAN [Concomitant]
     Active Substance: CHLORMADINONE ACETATE
     Dosage: UNK
  2. TAZOCILLINE [Suspect]
     Active Substance: PIPERACILLIN SODIUM\TAZOBACTAM SODIUM
     Indication: INFECTION
     Dosage: 4 G, 3X/DAY
     Dates: start: 20160405, end: 20160422

REACTIONS (7)
  - Neutropenia [Unknown]
  - Transaminases increased [Unknown]
  - Cholestasis [Unknown]
  - Anaemia [Unknown]
  - Thrombocytopenia [Unknown]
  - Leukopenia [Unknown]
  - Hyperthermia [Unknown]

NARRATIVE: CASE EVENT DATE: 20160421
